FAERS Safety Report 4745144-X (Version None)
Quarter: 2005Q3

REPORT INFORMATION
  Report Type: 
  Country: None (occurrence: None)
  Receive Date: 20050815
  Receipt Date: 20050803
  Transmission Date: 20060218
  Serious: Yes (Hospitalization)
  Sender: FDA-Public Use
  Company Number: US-ROCHE-413116

PATIENT
  Age: 35 Year
  Sex: Female
  Weight: 90.7 kg

DRUGS (2)
  1. KLONOPIN [Suspect]
     Indication: EPILEPSY
     Dosage: FROM AN UNSPECIFIED DATE THE PATIENT WAS WEANED OFF THERAPY OVER A PERIOD OF 9 MONTHS. THE DRUG WAS+
     Route: 048
     Dates: start: 20030615
  2. TEGRETOL [Concomitant]
     Indication: EPILEPSY
     Route: 065

REACTIONS (7)
  - AMNESIA [None]
  - CARDIAC DISORDER [None]
  - CONDITION AGGRAVATED [None]
  - DRUG WITHDRAWAL SYNDROME [None]
  - EPILEPSY [None]
  - GRAND MAL CONVULSION [None]
  - LOSS OF CONSCIOUSNESS [None]
